FAERS Safety Report 9363950 (Version 1)
Quarter: 2013Q2

REPORT INFORMATION
  Report Type: Spontaneous
  Country: GB (occurrence: GB)
  Receive Date: 20130624
  Receipt Date: 20130624
  Transmission Date: 20140414
  Serious: No
  Sender: FDA-Public Use
  Company Number: GB-JNJFOC-20130607696

PATIENT
  Age: 37 Year
  Sex: Female

DRUGS (1)
  1. DUROGESIC DTRANS [Suspect]
     Indication: BACK PAIN
     Route: 062

REACTIONS (2)
  - Exposure during pregnancy [Unknown]
  - Drug prescribing error [Unknown]
